FAERS Safety Report 8924554 (Version 2)
Quarter: 2013Q1

REPORT INFORMATION
  Report Type: Spontaneous
  Country: US (occurrence: US)
  Receive Date: 20121126
  Receipt Date: 20130319
  Transmission Date: 20140127
  Serious: Yes (Other)
  Sender: FDA-Public Use
  Company Number: US-BRISTOL-MYERS SQUIBB COMPANY-17129438

PATIENT
  Age: 53 Year
  Sex: Male

DRUGS (3)
  1. METFORMIN HCL [Suspect]
     Route: 048
     Dates: start: 201206, end: 20121009
  2. ZESTORETIC [Concomitant]
     Dosage: 1DF:10/12.5MG
  3. NEURONTIN [Concomitant]
     Dosage: 2 TABLETS

REACTIONS (3)
  - Hypoxia [Recovering/Resolving]
  - Glycosylated haemoglobin increased [Recovering/Resolving]
  - Back pain [Unknown]
